FAERS Safety Report 15726556 (Version 1)
Quarter: 2018Q4

REPORT INFORMATION
  Report Type: Spontaneous
  Country: US (occurrence: US)
  Receive Date: 20181217
  Receipt Date: 20181217
  Transmission Date: 20190205
  Serious: Yes (Hospitalization)
  Sender: FDA-Public Use
  Company Number: US-NOVOPROD-572838

PATIENT
  Age: 79 Year
  Sex: Female
  Weight: 63.39 kg

DRUGS (3)
  1. LEVEMIR [Suspect]
     Active Substance: INSULIN DETEMIR
     Indication: TYPE 2 DIABETES MELLITUS
     Dosage: UNK
     Route: 058
  2. LEVEMIR [Suspect]
     Active Substance: INSULIN DETEMIR
     Dosage: 10 U, BID
     Route: 058
     Dates: start: 2017
  3. LEVEMIR [Suspect]
     Active Substance: INSULIN DETEMIR
     Dosage: 70 U, QD
     Route: 058
     Dates: end: 2017

REACTIONS (6)
  - Memory impairment [Not Recovered/Not Resolved]
  - Blood glucose increased [Unknown]
  - Product dose omission [Unknown]
  - Glycosylated haemoglobin increased [Unknown]
  - Blood glucose decreased [Recovered/Resolved]
  - Confusional state [Not Recovered/Not Resolved]

NARRATIVE: CASE EVENT DATE: 2016
